FAERS Safety Report 6305075-0 (Version None)
Quarter: 2009Q3

REPORT INFORMATION
  Report Type: 
  Country: None (occurrence: None)
  Receive Date: 20090811
  Receipt Date: 20090730
  Transmission Date: 20100115
  Serious: Yes (Other)
  Sender: FDA-Public Use
  Company Number: US-PFIZER INC-2009249203

PATIENT
  Sex: Male
  Weight: 54.422 kg

DRUGS (3)
  1. NEURONTIN [Suspect]
     Indication: DEPRESSION
     Route: 048
     Dates: start: 20030801, end: 20040201
  2. NEURONTIN [Suspect]
     Indication: POST-TRAUMATIC STRESS DISORDER
  3. NEURONTIN [Suspect]
     Indication: HYPOAESTHESIA

REACTIONS (2)
  - INTENTIONAL SELF-INJURY [None]
  - SUICIDAL IDEATION [None]
